FAERS Safety Report 13332475 (Version 1)
Quarter: 2017Q1

REPORT INFORMATION
  Report Type: Spontaneous
  Country: US (occurrence: US)
  Receive Date: 20170314
  Receipt Date: 20170314
  Transmission Date: 20170428
  Serious: Yes (Other)
  Sender: FDA-Public Use
  Company Number: US-BAYER-2017-043956

PATIENT
  Age: 58 Year
  Sex: Male
  Weight: 113.38 kg

DRUGS (10)
  1. ELAVIL [Suspect]
     Active Substance: AMITRIPTYLINE HYDROCHLORIDE
     Indication: PAIN
     Dosage: UNK
  2. IBUPROFEN. [Suspect]
     Active Substance: IBUPROFEN
  3. KLONOPIN [Suspect]
     Active Substance: CLONAZEPAM
  4. TRAMADOL. [Suspect]
     Active Substance: TRAMADOL
     Dosage: UNK
  5. ALEVE [Suspect]
     Active Substance: NAPROXEN SODIUM
     Indication: PAIN
     Dosage: UNK
  6. OXYCODONE [Suspect]
     Active Substance: OXYCODONE
     Indication: PAIN
     Route: 048
  7. MORPHINE [Suspect]
     Active Substance: MORPHINE
     Dosage: UNK
  8. METHOCARBAMOL. [Suspect]
     Active Substance: METHOCARBAMOL
     Indication: PAIN
     Dosage: UNK
  9. SERTRALINE HYDROCHLORIDE. [Suspect]
     Active Substance: SERTRALINE HYDROCHLORIDE
     Indication: DEPRESSION
     Dosage: 2 DF, BID
     Route: 048
     Dates: start: 2016
  10. XANAX [Suspect]
     Active Substance: ALPRAZOLAM
     Indication: PANIC ATTACK
     Dosage: 2 MG, TID
     Route: 048

REACTIONS (10)
  - Seizure [Unknown]
  - Pain [Unknown]
  - Depression [Unknown]
  - Gait disturbance [Unknown]
  - Panic reaction [Unknown]
  - Drug dependence [Unknown]
  - Screaming [Unknown]
  - Muscle spasms [Unknown]
  - Gastric haemorrhage [Unknown]
  - Nervousness [Unknown]

NARRATIVE: CASE EVENT DATE: 201612
